FAERS Safety Report 5703678-5 (Version None)
Quarter: 2008Q2

REPORT INFORMATION
  Report Type: 
  Country: None (occurrence: None)
  Receive Date: 20080413
  Receipt Date: 20080404
  Transmission Date: 20081010
  Serious: Yes (Hospitalization)
  Sender: FDA-Public Use
  Company Number: PHRM2008FR01236

PATIENT
  Age: 76 Year
  Sex: Male

DRUGS (15)
  1. TRILEPTAL [Suspect]
     Indication: ABNORMAL BEHAVIOUR
     Dosage: 300 MG, QD
     Route: 048
     Dates: start: 20071201, end: 20071211
  2. IMOVANE [Concomitant]
  3. ZOLOFT [Concomitant]
  4. MONO-TILDIEM [Concomitant]
  5. ZOCOR [Concomitant]
  6. LASILIX [Concomitant]
  7. TRIATEC [Concomitant]
  8. UMULINE [Concomitant]
  9. HUMALOG [Concomitant]
  10. MEMANTINE HCL [Concomitant]
  11. REMINYL                                 /UNK/ [Concomitant]
  12. SERESTA [Concomitant]
  13. ATHYMIL [Concomitant]
  14. IMOVANE [Concomitant]
  15. VIRLIX [Concomitant]

REACTIONS (6)
  - CREATININE RENAL CLEARANCE DECREASED [None]
  - EOSINOPHILIA [None]
  - PYREXIA [None]
  - RASH MACULO-PAPULAR [None]
  - TOXIC SKIN ERUPTION [None]
  - WHITE BLOOD CELL COUNT INCREASED [None]
